FAERS Safety Report 7483388-7 (Version None)
Quarter: 2011Q2

REPORT INFORMATION
  Report Type: 
  Country: None (occurrence: None)
  Receive Date: 20110517
  Receipt Date: 20110331
  Transmission Date: 20111010
  Serious: No
  Sender: FDA-Public Use
  Company Number: US-BAYER-201039082NA

PATIENT
  Sex: Female
  Weight: 104.31 kg

DRUGS (11)
  1. YASMIN [Suspect]
     Indication: ACNE
  2. ALBUTEROL [Concomitant]
  3. IBUPROFEN [Concomitant]
  4. RESTASIS [Concomitant]
  5. PREDNISONE [Concomitant]
  6. DROSPIRENONE AND ETHINYL ESTRADIOL [Suspect]
     Indication: ACNE
  7. PROTONIX [Concomitant]
  8. IMITREX [Concomitant]
  9. YAZ [Suspect]
     Indication: ACNE
  10. SYNTHROID [Concomitant]
  11. TYLENOL W/ CODEINE [Concomitant]

REACTIONS (1)
  - INJURY [None]
